FAERS Safety Report 5263561-9 (Version None)
Quarter: 2007Q1

REPORT INFORMATION
  Report Type: 
  Country: None (occurrence: None)
  Receive Date: 20070313
  Receipt Date: 20070308
  Transmission Date: 20070707
  Serious: Yes (Hospitalization, Other)
  Sender: FDA-Public Use
  Company Number: US-BRISTOL-MYERS SQUIBB COMPANY-13707286

PATIENT
  Age: 35 Year
  Sex: Female

DRUGS (2)
  1. LOMUSTINE [Suspect]
     Indication: ANAPLASTIC ASTROCYTOMA
     Route: 048
  2. RADIOTHERAPY [Suspect]
     Indication: ANAPLASTIC ASTROCYTOMA

REACTIONS (7)
  - BONE MARROW FAILURE [None]
  - GASTROINTESTINAL NECROSIS [None]
  - NAUSEA [None]
  - OVERDOSE [None]
  - POSTOPERATIVE WOUND INFECTION [None]
  - PYREXIA [None]
  - VOMITING [None]
